FAERS Safety Report 6628982-8 (Version None)
Quarter: 2010Q1

REPORT INFORMATION
  Report Type: 
  Country: None (occurrence: None)
  Receive Date: 20100311
  Receipt Date: 20090807
  Transmission Date: 20100710
  Serious: No
  Sender: FDA-Public Use
  Company Number: US-BIOGENIDEC-2009BI024883

PATIENT
  Sex: Female

DRUGS (9)
  1. AVONEX [Suspect]
     Indication: MULTIPLE SCLEROSIS
     Route: 030
     Dates: start: 20080317
  2. SONATOR (FOR LACK OF SLEEP) [Concomitant]
     Indication: PAIN
  3. SONATOR (FOR LACK OF SLEEP) [Concomitant]
     Indication: INSOMNIA
  4. ALEVE (CAPLET) [Concomitant]
     Indication: PAIN
  5. ALEVE (CAPLET) [Concomitant]
     Indication: INSOMNIA
  6. MOTRIN [Concomitant]
     Indication: PAIN
  7. MOTRIN [Concomitant]
     Indication: INSOMNIA
  8. TYLENOL-500 [Concomitant]
     Indication: PAIN
  9. TYLENOL-500 [Concomitant]
     Indication: INSOMNIA

REACTIONS (3)
  - INSOMNIA [None]
  - PAIN [None]
  - RESTLESS LEGS SYNDROME [None]
